FAERS Safety Report 25407901 (Version 3)
Quarter: 2025Q3

REPORT INFORMATION
  Report Type: Report from Study
  Country: US (occurrence: US)
  Receive Date: 20250606
  Receipt Date: 20250707
  Transmission Date: 20251021
  Serious: Yes (Other)
  Sender: MYLAN
  Company Number: US-MYLANLABS-2025M1047409

PATIENT
  Sex: Female

DRUGS (12)
  1. AMLODIPINE [Suspect]
     Active Substance: AMLODIPINE BESYLATE
     Indication: Hypertension
  2. AMLODIPINE [Suspect]
     Active Substance: AMLODIPINE BESYLATE
     Route: 065
  3. AMLODIPINE [Suspect]
     Active Substance: AMLODIPINE BESYLATE
     Route: 065
  4. AMLODIPINE [Suspect]
     Active Substance: AMLODIPINE BESYLATE
  5. NORVASC [Suspect]
     Active Substance: AMLODIPINE BESYLATE
     Indication: Product used for unknown indication
     Route: 065
  6. NORVASC [Suspect]
     Active Substance: AMLODIPINE BESYLATE
  7. NORVASC [Suspect]
     Active Substance: AMLODIPINE BESYLATE
  8. NORVASC [Suspect]
     Active Substance: AMLODIPINE BESYLATE
     Route: 065
  9. NORVASC [Suspect]
     Active Substance: AMLODIPINE BESYLATE
     Route: 065
  10. NORVASC [Suspect]
     Active Substance: AMLODIPINE BESYLATE
  11. NORVASC [Suspect]
     Active Substance: AMLODIPINE BESYLATE
  12. NORVASC [Suspect]
     Active Substance: AMLODIPINE BESYLATE
     Route: 065

REACTIONS (3)
  - Blindness transient [Recovered/Resolved]
  - Ophthalmic migraine [Unknown]
  - Wrong technique in product usage process [Unknown]
